FAERS Safety Report 8166899-0 (Version None)
Quarter: 2012Q1

REPORT INFORMATION
  Report Type: 
  Country: None (occurrence: None)
  Receive Date: 20120227
  Receipt Date: 20120215
  Transmission Date: 20120608
  Serious: No
  Sender: FDA-Public Use
  Company Number: US-JNJFOC-20120208652

PATIENT
  Age: 19 Year
  Sex: Male

DRUGS (1)
  1. INVEGA SUSTENNA [Suspect]
     Indication: SCHIZOPHRENIA
     Route: 030
     Dates: start: 20120101

REACTIONS (3)
  - GYNAECOMASTIA [None]
  - SEXUAL DYSFUNCTION [None]
  - BLOOD PROLACTIN INCREASED [None]
